FAERS Safety Report 4626849-8 (Version None)
Quarter: 2005Q1

REPORT INFORMATION
  Report Type: 
  Country: None (occurrence: None)
  Receive Date: 20050331
  Receipt Date: 20050318
  Transmission Date: 20050727
  Serious: Yes (Hospitalization)
  Sender: FDA-Public Use
  Company Number: 184874

PATIENT
  Age: 36 Year
  Sex: Female

DRUGS (1)
  1. AVONEX [Suspect]
     Indication: MULTIPLE SCLEROSIS
     Dosage: INTRAMUSCULAR
     Route: 030
     Dates: start: 20030922, end: 20031001

REACTIONS (17)
  - ABASIA [None]
  - ASTHENIA [None]
  - CATHETER RELATED INFECTION [None]
  - CHEST PAIN [None]
  - DRUG INEFFECTIVE [None]
  - FLANK PAIN [None]
  - HEADACHE [None]
  - INFECTION [None]
  - INFLUENZA [None]
  - LYMPHOCYTE PERCENTAGE DECREASED [None]
  - LYMPHOCYTE PERCENTAGE INCREASED [None]
  - MENINGITIS [None]
  - MUSCULOSKELETAL STIFFNESS [None]
  - PAIN [None]
  - SHIFT TO THE LEFT [None]
  - URINE ANALYSIS ABNORMAL [None]
  - WHITE BLOOD CELL COUNT DECREASED [None]
